FAERS Safety Report 10144143 (Version 2)
Quarter: 2014Q2

REPORT INFORMATION
  Report Type: Report from Study
  Country: GB (occurrence: GB)
  Receive Date: 20140430
  Receipt Date: 20140616
  Transmission Date: 20141212
  Serious: Yes (Hospitalization)
  Sender: FDA-Public Use
  Company Number: GB-BRISTOL-MYERS SQUIBB COMPANY-20677415

PATIENT
  Age: 65 Year
  Sex: Female

DRUGS (3)
  1. ABATACEPT SUBQ INJECTION 125MG/ML [Suspect]
     Indication: RHEUMATOID ARTHRITIS
     Dosage: INTERRUPTED ON 23APR14?RESTARTED ON: 04MAY2014
     Route: 058
     Dates: start: 20140218
  2. METHOTREXATE [Suspect]
  3. PREDNISOLONE [Suspect]

REACTIONS (1)
  - Pyelonephritis acute [Recovered/Resolved]
